FAERS Safety Report 9395671 (Version 1)
Quarter: 2013Q3

REPORT INFORMATION
  Report Type: Spontaneous
  Country: US (occurrence: US)
  Receive Date: 20130711
  Receipt Date: 20130711
  Transmission Date: 20140515
  Serious: No
  Sender: FDA-Public Use
  Company Number: US-BRISTOL-MYERS SQUIBB COMPANY-18723619

PATIENT
  Age: 73 Year
  Sex: Male
  Weight: 84 kg

DRUGS (1)
  1. NULOJIX [Suspect]
     Indication: RENAL TRANSPLANT
     Dosage: D1,WK2,WK4,WK8?PENDING DOSE WK12,16,20?WK16 DOSE RED TO 5MG/KG
     Route: 042

REACTIONS (2)
  - Oedema peripheral [Recovering/Resolving]
  - Scrotal oedema [Recovering/Resolving]
